FAERS Safety Report 7965439-6 (Version None)
Quarter: 2011Q4

REPORT INFORMATION
  Report Type: 
  Country: None (occurrence: None)
  Receive Date: 20111208
  Receipt Date: 20111128
  Transmission Date: 20120403
  Serious: Yes (Hospitalization)
  Sender: FDA-Public Use
  Company Number: FR-BRISTOL-MYERS SQUIBB COMPANY-16270415

PATIENT
  Age: 67 Year
  Sex: Male

DRUGS (5)
  1. LANTUS [Suspect]
     Indication: TYPE 2 DIABETES MELLITUS
     Dates: start: 20110301
  2. ACARBOSE [Suspect]
     Indication: TYPE 2 DIABETES MELLITUS
     Dates: start: 20110301
  3. AMITRIPTYLINE HCL [Suspect]
     Indication: PAIN
     Dosage: 40MG/ML ORAL DROPS SOLN
     Route: 048
     Dates: start: 20110601, end: 20110902
  4. GLUCOPHAGE [Suspect]
     Indication: TYPE 2 DIABETES MELLITUS
     Route: 048
     Dates: start: 20110301
  5. FORLAX [Suspect]
     Indication: CONSTIPATION
     Dosage: POWDER FOR ORAL SOLN
     Route: 048
     Dates: start: 20110601, end: 20110902

REACTIONS (2)
  - CONDITION AGGRAVATED [None]
  - HYPONATRAEMIA [None]
